FAERS Safety Report 4338169-X (Version None)
Quarter: 2004Q2

REPORT INFORMATION
  Report Type: 
  Country: None (occurrence: None)
  Receive Date: 20040407
  Receipt Date: 20040326
  Transmission Date: 20050107
  Serious: Yes (Death, Life-Threatening, Hospitalization, Disabling)
  Sender: FDA-Public Use
  Company Number: 2003AP04443

PATIENT
  Age: 74 Year
  Sex: Male

DRUGS (6)
  1. IRESSA [Suspect]
     Indication: NEOPLASM
     Dosage: 500 MG DAILY PO
     Route: 048
     Dates: start: 20031203, end: 20031210
  2. IRESSA [Suspect]
     Indication: PANCREATIC CARCINOMA
     Dosage: 500 MG DAILY PO
     Route: 048
     Dates: start: 20031203, end: 20031210
  3. GLURENORM [Concomitant]
  4. MEBEVERINE [Concomitant]
  5. DOCALLOPU [Concomitant]
  6. LASIX [Concomitant]

REACTIONS (16)
  - ABDOMINAL PAIN [None]
  - ALANINE AMINOTRANSFERASE INCREASED [None]
  - ASPARTATE AMINOTRANSFERASE INCREASED [None]
  - ASTHENIA [None]
  - BLOOD ALKALINE PHOSPHATASE INCREASED [None]
  - BLOOD BILIRUBIN INCREASED [None]
  - BLOOD LACTATE DEHYDROGENASE INCREASED [None]
  - DIARRHOEA [None]
  - GAMMA-GLUTAMYLTRANSFERASE INCREASED [None]
  - GENERAL PHYSICAL HEALTH DETERIORATION [None]
  - HEPATIC FUNCTION ABNORMAL [None]
  - MALIGNANT NEOPLASM PROGRESSION [None]
  - PANCREATIC CARCINOMA METASTATIC [None]
  - POLYURIA [None]
  - RENAL FAILURE ACUTE [None]
  - TUMOUR LYSIS SYNDROME [None]
